FAERS Safety Report 9095722 (Version 1)
Quarter: 2013Q1

REPORT INFORMATION
  Report Type: Spontaneous
  Country: US (occurrence: US)
  Receive Date: 20130219
  Receipt Date: 20130219
  Transmission Date: 20140127
  Serious: Yes (Other)
  Sender: FDA-Public Use
  Company Number: US-FRI-1000042625

PATIENT
  Sex: Female

DRUGS (2)
  1. VIIBRYD [Suspect]
  2. PRISTIQ [Suspect]

REACTIONS (5)
  - Blood pressure increased [Unknown]
  - Heart rate increased [Unknown]
  - Anger [Unknown]
  - Hyperhidrosis [Unknown]
  - Paraesthesia [Unknown]
